FAERS Safety Report 7434588-3 (Version None)
Quarter: 2011Q2

REPORT INFORMATION
  Report Type: 
  Country: None (occurrence: None)
  Receive Date: 20110420
  Receipt Date: 20110420
  Transmission Date: 20111010
  Serious: No
  Sender: FDA-Public Use
  Company Number: None

PATIENT
  Age: 49 Year
  Sex: Male
  Weight: 88.4514 kg

DRUGS (1)
  1. OMEPRAZOLE [Suspect]
     Indication: OESOPHAGITIS
     Dosage: 40MG 1 DAILY PO
     Route: 048
     Dates: start: 20110414, end: 20110419

REACTIONS (6)
  - NAUSEA [None]
  - PRODUCT SUBSTITUTION ISSUE [None]
  - MUSCLE FATIGUE [None]
  - HEADACHE [None]
  - DRY MOUTH [None]
  - DRY THROAT [None]
